FAERS Safety Report 19177012 (Version 1)
Quarter: 2021Q2

REPORT INFORMATION
  Report Type: Report from Study
  Country: CA (occurrence: CA)
  Receive Date: 20210424
  Receipt Date: 20210424
  Transmission Date: 20210717
  Serious: Yes (Other)
  Sender: FDA-Public Use
  Company Number: PHHY2016CA065305

PATIENT
  Age: 46 Year
  Sex: Female

DRUGS (2)
  1. GABAPENTIN. [Concomitant]
     Active Substance: GABAPENTIN
     Indication: PRODUCT USED FOR UNKNOWN INDICATION
     Dosage: UNK UNK, QD
     Route: 065
  2. GILENYA [Suspect]
     Active Substance: FINGOLIMOD HYDROCHLORIDE
     Indication: RELAPSING-REMITTING MULTIPLE SCLEROSIS
     Dosage: UNK
     Route: 048
     Dates: start: 20160502

REACTIONS (30)
  - Arthralgia [Unknown]
  - Muscular weakness [Unknown]
  - Visual impairment [Unknown]
  - Eye pruritus [Unknown]
  - Ocular discomfort [Unknown]
  - Hypotension [Unknown]
  - Limb discomfort [Unknown]
  - Gait disturbance [Unknown]
  - Weight decreased [Unknown]
  - Diarrhoea [Not Recovered/Not Resolved]
  - Cystitis [Unknown]
  - Lymphocyte count decreased [Unknown]
  - Expanded disability status scale score increased [Unknown]
  - Eye pain [Not Recovered/Not Resolved]
  - Contusion [Unknown]
  - Eye discharge [Unknown]
  - Herpes zoster [Unknown]
  - Asthenia [Unknown]
  - Urinary tract infection [Unknown]
  - Rash [Unknown]
  - Nasal discharge discolouration [Unknown]
  - Nausea [Unknown]
  - Haematoma [Unknown]
  - Nasopharyngitis [Unknown]
  - Dry eye [Unknown]
  - Decreased appetite [Unknown]
  - Secretion discharge [Unknown]
  - Pain in extremity [Unknown]
  - Back pain [Unknown]
  - Fatigue [Unknown]

NARRATIVE: CASE EVENT DATE: 20160503
